FAERS Safety Report 16819014 (Version 1)
Quarter: 2019Q3

REPORT INFORMATION
  Report Type: Spontaneous
  Country: US (occurrence: US)
  Receive Date: 20190917
  Receipt Date: 20190917
  Transmission Date: 20191005
  Serious: Yes (Death, Hospitalization)
  Sender: FDA-Public Use
  Company Number: US-TEVA-2019-US-1108528

PATIENT
  Age: 66 Year
  Sex: Female

DRUGS (2)
  1. DILTIAZEM XR [Suspect]
     Active Substance: DILTIAZEM
     Indication: SUICIDE ATTEMPT
     Route: 065
  2. AMIODARONE [Suspect]
     Active Substance: AMIODARONE
     Indication: SUICIDE ATTEMPT
     Route: 065

REACTIONS (4)
  - Ventricular fibrillation [Fatal]
  - Completed suicide [Fatal]
  - Cardiac arrest [Fatal]
  - Cardiogenic shock [Fatal]
